FAERS Safety Report 25842564 (Version 1)
Quarter: 2025Q3

REPORT INFORMATION
  Report Type: Spontaneous
  Country: EU (occurrence: EU)
  Receive Date: 20250924
  Receipt Date: 20250924
  Transmission Date: 20251020
  Serious: Yes (Other)
  Sender: SANDOZ
  Company Number: EU-002147023-NVSC2025DE114992

PATIENT
  Sex: Female

DRUGS (1)
  1. AZOPT [Suspect]
     Active Substance: BRINZOLAMIDE
     Indication: Glaucoma
     Route: 065

REACTIONS (3)
  - Macular degeneration [Unknown]
  - Road traffic accident [Unknown]
  - Product use issue [Unknown]
